FAERS Safety Report 5680197-6 (Version None)
Quarter: 2008Q1

REPORT INFORMATION
  Report Type: 
  Country: None (occurrence: None)
  Receive Date: 20080326
  Receipt Date: 20080318
  Transmission Date: 20080703
  Serious: Yes (Other)
  Sender: FDA-Public Use
  Company Number: PHBS2008BE03493

PATIENT
  Age: 50 Year
  Sex: Male

DRUGS (2)
  1. LEPONEX [Suspect]
     Indication: PSYCHOTIC DISORDER
     Dosage: 500-600 MG/DAY
     Route: 065
     Dates: end: 20080101
  2. ZYPREXA [Suspect]
     Indication: PSYCHOTIC DISORDER
     Route: 065
     Dates: start: 20080101

REACTIONS (6)
  - CHRONIC MYELOID LEUKAEMIA [None]
  - DECREASED APPETITE [None]
  - LUMBAR PUNCTURE ABNORMAL [None]
  - SALIVARY HYPERSECRETION [None]
  - WEIGHT DECREASED [None]
  - WHITE BLOOD CELL COUNT INCREASED [None]
